FAERS Safety Report 9269035 (Version 2)
Quarter: 2013Q2

REPORT INFORMATION
  Report Type: Spontaneous
  Country: US (occurrence: US)
  Receive Date: 20130503
  Receipt Date: 20130519
  Transmission Date: 20140414
  Serious: Yes (Death)
  Sender: FDA-Public Use
  Company Number: US-ROCHE-1220899

PATIENT
  Sex: Female

DRUGS (8)
  1. HERCEPTIN [Suspect]
     Indication: HER-2 POSITIVE BREAST CANCER
     Route: 042
     Dates: start: 20120103, end: 20120402
  2. HYDROCHLORZIDE [Concomitant]
     Indication: FLUID RETENTION
     Route: 048
     Dates: start: 20121104
  3. ZOLPIDEM [Concomitant]
     Indication: INSOMNIA
     Dosage: PRN
     Route: 048
     Dates: start: 20121218
  4. PAXIL [Concomitant]
     Indication: ANXIETY
     Dosage: DAILY
     Route: 048
     Dates: start: 20121104
  5. LORAZEPAM [Concomitant]
     Dosage: PRN
     Route: 065
     Dates: start: 20121104
  6. VERAPAMIL [Concomitant]
     Route: 065
     Dates: start: 20121104
  7. ONDANSETRON [Concomitant]
     Dosage: PRN
     Route: 065
     Dates: start: 20121104
  8. IMODIUM A-D [Concomitant]
     Dosage: T, PRN
     Route: 065
     Dates: start: 20121104

REACTIONS (1)
  - Coronary artery stenosis [Fatal]
